FAERS Safety Report 4344725-5 (Version None)
Quarter: 2004Q2

REPORT INFORMATION
  Report Type: 
  Country: None (occurrence: None)
  Receive Date: 20040420
  Receipt Date: 20040407
  Transmission Date: 20050107
  Serious: No
  Sender: FDA-Public Use
  Company Number: 04P-163-0256225-00

PATIENT
  Age: 50 Year
  Sex: Male
  Weight: 99.7913 kg

DRUGS (6)
  1. HUMIRA [Suspect]
     Indication: RHEUMATOID ARTHRITIS
     Dosage: 40 MG, 1 IN 2 WK, SUBCUTANEOUS; 40 MG, 1 IN 1 WK, SUBCUTANEOUS
     Route: 058
     Dates: start: 20030701, end: 20040201
  2. HUMIRA [Suspect]
     Indication: RHEUMATOID ARTHRITIS
     Dosage: 40 MG, 1 IN 2 WK, SUBCUTANEOUS; 40 MG, 1 IN 1 WK, SUBCUTANEOUS
     Route: 058
     Dates: start: 20040201, end: 20040319
  3. METHOTREXATE SODIUM [Concomitant]
  4. LEFLUNOMIDE [Concomitant]
  5. METOPROLOL TARTRATE [Concomitant]
  6. PREDNISONE [Concomitant]

REACTIONS (9)
  - ANGIONEUROTIC OEDEMA [None]
  - CHEST PAIN [None]
  - DRUG INEFFECTIVE [None]
  - DYSPHAGIA [None]
  - EYE SWELLING [None]
  - INSOMNIA [None]
  - JOINT STIFFNESS [None]
  - PHARYNGOLARYNGEAL PAIN [None]
  - SWOLLEN TONGUE [None]
